FAERS Safety Report 9677409 (Version 1)
Quarter: 2013Q4

REPORT INFORMATION
  Report Type: Spontaneous
  Country: US (occurrence: US)
  Receive Date: 20131108
  Receipt Date: 20131108
  Transmission Date: 20140711
  Serious: No
  Sender: FDA-Public Use
  Company Number: US-ENDO PHARMACEUTICALS INC.-PHEN20120010

PATIENT
  Age: 53 Year
  Sex: Female
  Weight: 95.34 kg

DRUGS (1)
  1. PHENTERMINE HCL TABLETS [Suspect]
     Indication: DECREASED APPETITE
     Dosage: 18.75MG
     Route: 048
     Dates: start: 20111018, end: 20111112

REACTIONS (3)
  - Pain [Not Recovered/Not Resolved]
  - Oedema peripheral [Not Recovered/Not Resolved]
  - Blood pressure increased [Not Recovered/Not Resolved]
